FAERS Safety Report 6169946-0 (Version None)
Quarter: 2009Q2

REPORT INFORMATION
  Report Type: 
  Country: None (occurrence: None)
  Receive Date: 20090428
  Receipt Date: 20090420
  Transmission Date: 20091009
  Serious: Yes (Hospitalization)
  Sender: FDA-Public Use
  Company Number: ES-JNJFOC-20090405573

PATIENT
  Sex: Male
  Weight: 50 kg

DRUGS (10)
  1. DURAGESIC-100 [Suspect]
     Indication: PAIN
     Route: 062
  2. ADIRO [Concomitant]
     Indication: DRUG USE FOR UNKNOWN INDICATION
  3. CLOPIDOGREL [Concomitant]
     Indication: DRUG USE FOR UNKNOWN INDICATION
  4. MASDIL [Concomitant]
     Indication: DRUG USE FOR UNKNOWN INDICATION
  5. OMEPRAZOL [Concomitant]
     Indication: DRUG USE FOR UNKNOWN INDICATION
  6. CARDYL [Concomitant]
     Indication: DRUG USE FOR UNKNOWN INDICATION
  7. NITRO-DUR [Concomitant]
     Indication: DRUG USE FOR UNKNOWN INDICATION
  8. DUPHALAC [Concomitant]
     Indication: DRUG USE FOR UNKNOWN INDICATION
  9. CELEBREX [Concomitant]
     Indication: DRUG USE FOR UNKNOWN INDICATION
  10. TRANKIMACIN [Concomitant]
     Indication: DRUG USE FOR UNKNOWN INDICATION

REACTIONS (3)
  - DRUG WITHDRAWAL SYNDROME [None]
  - INAPPROPRIATE SCHEDULE OF DRUG ADMINISTRATION [None]
  - PRODUCT QUALITY ISSUE [None]
